FAERS Safety Report 22536158 (Version 1)
Quarter: 2023Q2

REPORT INFORMATION
  Report Type: Report from Study
  Country: US (occurrence: None)
  Receive Date: 20230608
  Receipt Date: 20230608
  Transmission Date: 20230722
  Serious: Yes (Other)
  Sender: FDA-Public Use
  Company Number: 2023A126872

PATIENT
  Sex: Female
  Weight: 49.9 kg

DRUGS (1)
  1. CALQUENCE [Suspect]
     Active Substance: ACALABRUTINIB
     Indication: Chronic lymphocytic leukaemia
     Route: 048

REACTIONS (7)
  - Deafness [Unknown]
  - Haemorrhage [Unknown]
  - Balance disorder [Unknown]
  - Hyposmia [Unknown]
  - Visual impairment [Unknown]
  - Hypogeusia [Unknown]
  - Therapy interrupted [Unknown]
